FAERS Safety Report 13263534 (Version 1)
Quarter: 2017Q1

REPORT INFORMATION
  Report Type: Report from Study
  Country: FR (occurrence: FR)
  Receive Date: 20170223
  Receipt Date: 20170223
  Transmission Date: 20170428
  Serious: Yes (Other)
  Sender: FDA-Public Use
  Company Number: FR-ASTELLAS-2017US006893

PATIENT
  Sex: Male

DRUGS (5)
  1. CLARELUX [Concomitant]
     Active Substance: CLOBETASOL PROPIONATE
     Indication: DERMATITIS ATOPIC
     Dosage: UNK UNK, UNKNOWN FREQ.
     Route: 065
  2. TACROLIMUS. [Suspect]
     Active Substance: TACROLIMUS
     Dosage: 0.03 %, ONCE A DAY TWICE WEEKLY AS MAINTENANCE TREATMENT
     Route: 061
     Dates: start: 20130320
  3. ATODERM [Concomitant]
     Indication: DERMATITIS ATOPIC
     Dosage: UNK UNK, UNKNOWN FREQ.
     Route: 065
  4. DIPROSONE                          /00008502/ [Concomitant]
     Active Substance: BETAMETHASONE SODIUM PHOSPHATE
     Indication: DERMATITIS ATOPIC
     Dosage: 0.05 %, UNKNOWN FREQ.
     Route: 065
  5. TACROLIMUS. [Suspect]
     Active Substance: TACROLIMUS
     Indication: DERMATITIS ATOPIC
     Dosage: 0.03 %, UNKNOWN FREQ.
     Route: 061
     Dates: start: 20110413

REACTIONS (1)
  - Staphylococcus test positive [Unknown]
